FAERS Safety Report 8777954 (Version 2)
Quarter: 2012Q4

REPORT INFORMATION
  Report Type: 
  Country: IE (occurrence: IE)
  Receive Date: 20120912
  Receipt Date: 20120914
  Transmission Date: 20130627
  Serious: Yes (Other)
  Sender: FDA-Public Use
  Company Number: PHHY2012IE077785

PATIENT
  Age: 30 Year
  Sex: Female

DRUGS (2)
  1. METHADONE [Suspect]
     Indication: DRUG DEPENDENCE
     Dosage: 80 mg, QD
  2. METHADONE [Suspect]
     Dosage: 70 mg, QD

REACTIONS (7)
  - Galactorrhoea [Unknown]
  - Lymphadenopathy [Unknown]
  - Hypoprolactinaemia [Unknown]
  - Breast pain [Unknown]
  - Breast discharge [Unknown]
  - Breast mass [Unknown]
  - Blood alkaline phosphatase increased [Recovered/Resolved]
